FAERS Safety Report 25026298 (Version 3)
Quarter: 2025Q2

REPORT INFORMATION
  Report Type: Report from Study
  Country: US (occurrence: US)
  Receive Date: 20250301
  Receipt Date: 20250407
  Transmission Date: 20250716
  Serious: Yes (Death, Other)
  Sender: SANOFI AVENTIS
  Company Number: US-SA-2025SA059951

PATIENT
  Age: 78 Year
  Sex: Female

DRUGS (2)
  1. DUPILUMAB [Suspect]
     Active Substance: DUPILUMAB
     Indication: Dermatitis atopic
     Route: 058
     Dates: start: 20191205, end: 20191205
  2. DUPILUMAB [Suspect]
     Active Substance: DUPILUMAB
     Dosage: 300 MG, Q2W
     Route: 058
     Dates: start: 20240509, end: 20240509

REACTIONS (1)
  - Renal cancer [Fatal]

NARRATIVE: CASE EVENT DATE: 20240601
